FAERS Safety Report 4280922-5 (Version None)
Quarter: 2004Q1

REPORT INFORMATION
  Report Type: 
  Country: None (occurrence: None)
  Receive Date: 20040129
  Receipt Date: 20040120
  Transmission Date: 20041129
  Serious: Yes (Other)
  Sender: FDA-Public Use
  Company Number: GB-GLAXOSMITHKLINE-B0320605A

PATIENT
  Age: 49 Year
  Sex: Female
  Weight: 72.1 kg

DRUGS (8)
  1. AVANDIA [Suspect]
     Route: 048
     Dates: start: 20030701, end: 20030717
  2. FLUVASTATIN [Concomitant]
     Route: 065
     Dates: start: 19990315
  3. AMITRIPTYLINE HYDROCHLORIDE [Concomitant]
     Route: 065
     Dates: start: 19990608
  4. CELIPROLOL HYDROCHLORIDE [Concomitant]
     Route: 065
     Dates: start: 20000229
  5. METFORMIN HCL [Concomitant]
     Route: 065
     Dates: start: 20001214
  6. GLICLAZIDE [Concomitant]
     Route: 065
     Dates: start: 20011003
  7. OMEPRAZOLE [Concomitant]
     Route: 065
     Dates: start: 20021017
  8. FOSINOPRIL SODIUM [Concomitant]
     Route: 065

REACTIONS (4)
  - ARTHRITIS [None]
  - FATIGUE [None]
  - HEADACHE [None]
  - INCREASED APPETITE [None]
